FAERS Safety Report 18157664 (Version 1)
Quarter: 2020Q3

REPORT INFORMATION
  Report Type: Spontaneous
  Country: US (occurrence: US)
  Receive Date: 20200817
  Receipt Date: 20200817
  Transmission Date: 20201103
  Serious: No
  Sender: FDA-Public Use
  Company Number: US-SPECGX-T201907053

PATIENT
  Sex: Female
  Weight: 61 kg

DRUGS (1)
  1. OXYCODONE [Suspect]
     Active Substance: OXYCODONE
     Indication: PAIN
     Dosage: 15 MILLIGRAM, QID
     Route: 065

REACTIONS (3)
  - Product colour issue [Unknown]
  - Drug ineffective [Unknown]
  - Headache [Unknown]
